FAERS Safety Report 12309433 (Version 6)
Quarter: 2016Q4

REPORT INFORMATION
  Report Type: Spontaneous
  Country: US (occurrence: US)
  Receive Date: 20160427
  Receipt Date: 20161227
  Transmission Date: 20170207
  Serious: No
  Sender: FDA-Public Use
  Company Number: US-PFIZER INC-2016224508

PATIENT
  Age: 66 Year
  Sex: Female

DRUGS (6)
  1. XGEVA [Concomitant]
     Active Substance: DENOSUMAB
     Dosage: UNK
  2. VITAMIN D3 [Concomitant]
     Active Substance: CHOLECALCIFEROL
     Dosage: UNK
  3. CALCIUM CARBONATE. [Concomitant]
     Active Substance: CALCIUM CARBONATE
     Dosage: UNK
  4. IBRANCE [Suspect]
     Active Substance: PALBOCICLIB
     Indication: BREAST CANCER FEMALE
     Dosage: 100 MG, CYCLIC (100 MG, DAILY FOR 21 DAYS, THEN 7 DAYS OFF. THEN REPEAT CYCLE.TAKE WITH FOOD(1QDX21)
  5. LETROZOLE. [Concomitant]
     Active Substance: LETROZOLE
     Dosage: UNK
  6. VITAMIN C [Concomitant]
     Active Substance: ASCORBIC ACID
     Dosage: UNK

REACTIONS (5)
  - White blood cell count decreased [Unknown]
  - Fatigue [Unknown]
  - Constipation [Recovering/Resolving]
  - Depression [Unknown]
  - Alopecia [Not Recovered/Not Resolved]
